FAERS Safety Report 8895082 (Version 1)
Quarter: 2012Q4

REPORT INFORMATION
  Report Type: 
  Country: US (occurrence: US)
  Receive Date: 20121107
  Receipt Date: 20121107
  Transmission Date: 20130627
  Serious: No
  Sender: FDA-Public Use
  Company Number: US-AMGEN-USASP2011049139

PATIENT
  Age: 76 Year
  Sex: Female
  Weight: 99 kg

DRUGS (9)
  1. ENBREL [Suspect]
     Indication: PRODUCT USED FOR UNKNOWN INDICATION
     Dosage: 50 mg, qwk
  2. METHOTREXATE [Concomitant]
     Dosage: 2.5 mg, UNK
  3. CARDIZEM                           /00489701/ [Concomitant]
  4. METOPROLOL TARTRATE [Concomitant]
     Dosage: 100 mg, UNK
  5. FOLIC ACID [Concomitant]
     Dosage: 1 mg, UNK
  6. LEXAPRO [Concomitant]
     Dosage: 20 mg, UNK
  7. MULTIVITAMIN                       /00097801/ [Concomitant]
  8. TRAMADOL HCL [Concomitant]
     Dosage: 200 mg, UNK
  9. VISION PLUS [Concomitant]

REACTIONS (1)
  - Psoriasis [Unknown]
